FAERS Safety Report 9201713 (Version 2)
Quarter: 2013Q2

REPORT INFORMATION
  Report Type: Spontaneous
  Country: MX (occurrence: MX)
  Receive Date: 20130401
  Receipt Date: 20130408
  Transmission Date: 20140414
  Serious: Yes (Death, Hospitalization)
  Sender: FDA-Public Use
  Company Number: PHHY2013MX031076

PATIENT
  Age: 69 Year
  Sex: Female

DRUGS (2)
  1. CO-DIOVAN [Suspect]
     Indication: HYPERTENSION
     Dosage: 02 DF, (VALSARTAN 80 MG /HYDROCHLOROTHIAZIDE12.5 MG)
     Route: 048
     Dates: end: 20130128
  2. GLIMETAL [Concomitant]
     Indication: DIABETES MELLITUS
     Dosage: 1 DF, DAILY

REACTIONS (1)
  - Ill-defined disorder [Fatal]
